FAERS Safety Report 26002218 (Version 1)
Quarter: 2025Q4

REPORT INFORMATION
  Report Type: Spontaneous
  Country: US (occurrence: US)
  Receive Date: 20251105
  Receipt Date: 20251105
  Transmission Date: 20260117
  Serious: No
  Sender: CELLTRION
  Company Number: US-CELLTRION INC.-2025US025993

PATIENT

DRUGS (8)
  1. ZYMFENTRA [Suspect]
     Active Substance: INFLIXIMAB-DYYB
     Indication: Crohn^s disease
     Dosage: 120 MG/ML PEN KIT - INJECT THE CONTENTS OF ONE DEVICE UNDER THE SKIN EVERY TWO WEEKS
     Route: 058
  2. ZYMFENTRA [Suspect]
     Active Substance: INFLIXIMAB-DYYB
     Dosage: ONE PEN EVERY TWO WEEKS
     Route: 058
     Dates: start: 20250715
  3. ZYMFENTRA [Suspect]
     Active Substance: INFLIXIMAB-DYYB
     Dosage: ONE PEN ONE WEEK APART
     Route: 058
     Dates: start: 20250719
  4. ZYMFENTRA [Suspect]
     Active Substance: INFLIXIMAB-DYYB
     Dosage: ONE PEN ONE WEEK APART
     Route: 058
     Dates: start: 20250726
  5. DUTASTERIDE [Concomitant]
     Active Substance: DUTASTERIDE
     Dosage: 0.05 MG DAILY
  6. SPIRONOLACTONE [Concomitant]
     Active Substance: SPIRONOLACTONE
     Dosage: 100 MG DAILY
  7. TRETINOIN [Concomitant]
     Active Substance: TRETINOIN
     Dosage: UNK, EVERY NIGHT
     Route: 061
  8. YAZ [Concomitant]
     Active Substance: DROSPIRENONE\ETHINYL ESTRADIOL
     Indication: Oral contraception

REACTIONS (1)
  - Inappropriate schedule of product administration [Unknown]

NARRATIVE: CASE EVENT DATE: 20250719
